FAERS Safety Report 10521692 (Version 3)
Quarter: 2014Q4

REPORT INFORMATION
  Report Type: Report from Study
  Country: US (occurrence: US)
  Receive Date: 20141016
  Receipt Date: 20141105
  Transmission Date: 20150528
  Serious: Yes (Death, Life-Threatening, Hospitalization)
  Sender: FDA-Public Use
  Company Number: US-009507513-1407USA002596

PATIENT
  Age: 88 Year
  Sex: Male

DRUGS (9)
  1. FLUDROCORTISONE [Concomitant]
     Active Substance: FLUDROCORTISONE
     Indication: ADRENAL INSUFFICIENCY
     Dosage: UNK, QD, STRENGTH: 5 MG, TOTAL DAILY DOSE 5MG
     Route: 048
     Dates: start: 20130918
  2. HYDROCORTISONE. [Concomitant]
     Active Substance: HYDROCORTISONE
     Indication: ADRENAL INSUFFICIENCY
     Dosage: 30 MG, QD
     Route: 048
     Dates: start: 20130918
  3. LEVOFLOXACIN. [Concomitant]
     Active Substance: LEVOFLOXACIN
     Indication: PNEUMONIA
     Dosage: UNK, 5 TIMES PER DAY, STRENGTH: 500 MG, TOTAL DAILY DOSE 2500 MG
     Route: 048
     Dates: start: 20140627
  4. SYNTHROID [Concomitant]
     Active Substance: LEVOTHYROXINE SODIUM
     Indication: HYPOTHYROIDISM
     Dosage: UNK, QD,STRENGTH: 125 MG, TOTAL DAILY DOSE 125 MG
     Route: 048
     Dates: start: 20060810
  5. ZOCOR [Concomitant]
     Active Substance: SIMVASTATIN
     Indication: BLOOD CHOLESTEROL
     Dosage: UNK, QD, STRENGTH: 5 MG, TOTAL DAILY DOSE: 5 MG
     Route: 048
     Dates: start: 20060810
  6. DORZOLAMIDE HYDROCHLORIDE (+) TIMOLOL MALEATE [Concomitant]
     Active Substance: DORZOLAMIDE HYDROCHLORIDE\TIMOLOL MALEATE
     Indication: GLAUCOMA
     Dosage: UNK, BID
     Route: 047
     Dates: start: 20080605
  7. PEMBROLIZUMAB. [Suspect]
     Active Substance: PEMBROLIZUMAB
     Indication: METASTATIC MALIGNANT MELANOMA
     Dosage: 2 MG/KG, Q3W, TOTAL DAILY DOSE 160 MG
     Route: 042
     Dates: start: 20140701, end: 20140701
  8. XALATAN [Concomitant]
     Active Substance: LATANOPROST
     Indication: GLAUCOMA
     Dosage: UNK, QD, STRENGTH: 1  DROP, TOTAL DAILY DOSE 1 DROP
     Route: 047
     Dates: start: 20130918
  9. ALPHAGAN P [Concomitant]
     Active Substance: BRIMONIDINE TARTRATE
     Indication: GLAUCOMA
     Dosage: UNK, TID, STRENGTH: 2 DROPS, TOTAL DAILY DOSE 6 DROPS
     Route: 047
     Dates: start: 20080605

REACTIONS (3)
  - Pyrexia [Unknown]
  - Depressed level of consciousness [Unknown]
  - Malignant neoplasm progression [Fatal]

NARRATIVE: CASE EVENT DATE: 20140712
